FAERS Safety Report 20582736 (Version 10)
Quarter: 2024Q1

REPORT INFORMATION
  Report Type: Spontaneous
  Country: US (occurrence: US)
  Receive Date: 20220311
  Receipt Date: 20240314
  Transmission Date: 20240410
  Serious: Yes (Other)
  Sender: FDA-Public Use
  Company Number: US-PFIZER INC-202101319816

PATIENT
  Age: 69 Year
  Sex: Female

DRUGS (6)
  1. IBRANCE [Suspect]
     Active Substance: PALBOCICLIB
     Indication: Hormone receptor positive HER2 negative breast cancer
     Dosage: 125 MG
     Dates: start: 202108
  2. IBRANCE [Suspect]
     Active Substance: PALBOCICLIB
     Dosage: 100 MG
     Dates: start: 20220228
  3. IBRANCE [Suspect]
     Active Substance: PALBOCICLIB
     Dosage: 125 MG
  4. IBRANCE [Suspect]
     Active Substance: PALBOCICLIB
     Dosage: DAILY FOR 21 DAYS THEN 7 DAYS OFF;3 WEEKS ON/1 WEEK OFF
     Route: 048
  5. FEMARA [Suspect]
     Active Substance: LETROZOLE
     Indication: Hormone receptor positive HER2 negative breast cancer
     Dosage: UNK
     Dates: start: 202108
  6. ZOMETA [Suspect]
     Active Substance: ZOLEDRONIC ACID
     Indication: Hormone receptor positive HER2 negative breast cancer
     Dosage: UNK
     Dates: start: 202108

REACTIONS (8)
  - Cerebral haemorrhage [Recovering/Resolving]
  - Neoplasm progression [Unknown]
  - Malaise [Unknown]
  - Jaw disorder [Not Recovered/Not Resolved]
  - Gastrointestinal disorder [Unknown]
  - Nausea [Unknown]
  - Pleural effusion [Unknown]
  - Cold-stimulus headache [Unknown]
